FAERS Safety Report 13299194 (Version 2)
Quarter: 2017Q3

REPORT INFORMATION
  Report Type: Report from Study
  Country: FR (occurrence: FR)
  Receive Date: 20170306
  Receipt Date: 20170907
  Transmission Date: 20171127
  Serious: Yes (Life-Threatening)
  Sender: FDA-Public Use
  Company Number: FR-PFIZER INC-2017089158

PATIENT
  Age: 73 Year
  Sex: Male
  Weight: 92.7 kg

DRUGS (13)
  1. VANCOMYCINE [Concomitant]
     Active Substance: VANCOMYCIN
     Indication: PYREXIA
     Dosage: 3000 MG, DAILY
     Route: 042
     Dates: start: 20170223, end: 20170226
  2. ZOPHREN /00955301/ [Concomitant]
     Active Substance: ONDANSETRON
     Dosage: 2 DF, UNK
     Dates: start: 20170209
  3. MOVICOL [Concomitant]
     Active Substance: POLYETHYLENE GLYCOL 3350\POTASSIUM CHLORIDE\SODIUM BICARBONATE\SODIUM CHLORIDE
     Indication: CONSTIPATION PROPHYLAXIS
     Dosage: 2 DF, AS NEEDED
     Route: 042
     Dates: start: 20170212
  4. ACICLOVIR [Concomitant]
     Active Substance: ACYCLOVIR
     Dosage: 2610 MG, DAILY
     Route: 042
     Dates: start: 20170222
  5. ZAVEDOS [Suspect]
     Active Substance: IDARUBICIN
     Indication: ACUTE MYELOID LEUKAEMIA
     Dosage: 24 MG, CYCLIC, DAY 1 TO DAY 2
     Route: 042
     Dates: start: 20170210, end: 20170211
  6. CYTARABINE. [Suspect]
     Active Substance: CYTARABINE
     Indication: ACUTE MYELOID LEUKAEMIA
     Dosage: 400 MG, DAILY
     Dates: start: 20170209, end: 20170215
  7. ALPRAZOLAM. [Concomitant]
     Active Substance: ALPRAZOLAM
     Indication: ANXIETY
     Dosage: 0.25 UNK, AS NEEDED
     Route: 048
     Dates: start: 20170222
  8. CERNEVIT [Concomitant]
     Active Substance: VITAMINS
     Indication: VITAMIN SUPPLEMENTATION
     Dosage: 1 DF, DAILY
     Route: 042
     Dates: start: 20170214
  9. IMIPENEM AND CILASTATIN [Concomitant]
     Active Substance: CILASTATIN SODIUM\IMIPENEM
     Indication: PSEUDOMONAL BACTERAEMIA
     Dosage: 3000 MG, DAILY
     Route: 042
     Dates: start: 20170218
  10. PANTOPRAZOLE [Concomitant]
     Active Substance: PANTOPRAZOLE
     Indication: PROPHYLAXIS
     Dosage: 40 MG, DAILY
     Route: 042
     Dates: start: 20170211
  11. EUPRESSYL /00631801/ [Concomitant]
     Active Substance: URAPIDIL
     Indication: HYPERTENSION
     Dosage: 60 MG, DAILY
     Route: 048
     Dates: start: 20170222
  12. NUTRYELT [Concomitant]
     Indication: VITAMIN SUPPLEMENTATION
     Dosage: 1 DF, DAILY
     Route: 042
     Dates: start: 20170214
  13. NIVESTIM [Concomitant]
     Active Substance: FILGRASTIM
     Indication: NEUTROPENIA
     Dosage: 48 IU, DAILY
     Route: 058
     Dates: start: 20170217

REACTIONS (1)
  - Mucormycosis [Not Recovered/Not Resolved]

NARRATIVE: CASE EVENT DATE: 20170223
